FAERS Safety Report 16743782 (Version 1)
Quarter: 2019Q3

REPORT INFORMATION
  Report Type: Report from Study
  Country: US (occurrence: US)
  Receive Date: 20190827
  Receipt Date: 20190827
  Transmission Date: 20191005
  Serious: No
  Sender: FDA-Public Use
  Company Number: US-VEROSCIENCE-VER-2019-00007

PATIENT

DRUGS (1)
  1. CYCLOSET [Suspect]
     Active Substance: BROMOCRIPTINE MESYLATE

REACTIONS (1)
  - Hypotension [Unknown]
